FAERS Safety Report 4530915-5 (Version None)
Quarter: 2004Q4

REPORT INFORMATION
  Report Type: 
  Country: None (occurrence: None)
  Receive Date: 20041215
  Receipt Date: 20041130
  Transmission Date: 20050328
  Serious: Yes (Death)
  Sender: FDA-Public Use
  Company Number: MK200412-0008-2

PATIENT
  Age: 39 Year
  Sex: Male

DRUGS (3)
  1. METHADONE HCL [Suspect]
     Dosage: 100 MG TABLETS, 58 TABS'WEEKEND OF 7/28/2003
     Dates: end: 20030728
  2. XANAX [Concomitant]
  3. PROZAC [Concomitant]

REACTIONS (2)
  - OVERDOSE [None]
  - SELF-MEDICATION [None]
